FAERS Safety Report 18170998 (Version 3)
Quarter: 2020Q4

REPORT INFORMATION
  Report Type: Report from Study
  Country: None (occurrence: US)
  Receive Date: 20200819
  Receipt Date: 20201020
  Transmission Date: 20210113
  Serious: Yes (Hospitalization)
  Sender: FDA-Public Use
  Company Number: US-ABBVIE-20P-163-3521082-00

PATIENT
  Age: 48 Year
  Sex: Male
  Weight: 116.3 kg

DRUGS (10)
  1. VENETOCLAX. [Suspect]
     Active Substance: VENETOCLAX
     Dosage: D8-14, CYCLE 3 (CYCLE = 28 DAYS)
     Route: 048
  2. OBINUTUZUMAB. [Concomitant]
     Active Substance: OBINUTUZUMAB
     Dosage: D2, CYCLE 1 (CYCLE = 28 DAYS)
     Route: 042
  3. VENETOCLAX. [Suspect]
     Active Substance: VENETOCLAX
     Indication: CHRONIC LYMPHOCYTIC LEUKAEMIA
     Dosage: D1-7 CYCLE 3 (CYCLE = 28 DAYS)
     Route: 048
     Dates: start: 20191113
  4. OBINUTUZUMAB. [Concomitant]
     Active Substance: OBINUTUZUMAB
     Dosage: D1, CYCLE 2-6 (CYCLE = 28 DAYS)
     Route: 042
  5. VENETOCLAX. [Suspect]
     Active Substance: VENETOCLAX
     Dosage: D1-28, CYCLES 4-14 (CYCLE = 28 DAYS)?LAST DOSE PRIOR TO EVENT ON 14 JUL 2020
     Route: 048
  6. OBINUTUZUMAB. [Concomitant]
     Active Substance: OBINUTUZUMAB
     Indication: CHRONIC LYMPHOCYTIC LEUKAEMIA
     Dosage: D1, CYCLE 1 (CYCLE = 28 DAYS)?DOSE PRIOR TO ONSET OF THE EVENT ON: 14 JUL 2020 (100 MG)
     Route: 042
     Dates: start: 20191113
  7. IBRUTINIB [Suspect]
     Active Substance: IBRUTINIB
     Indication: CHRONIC LYMPHOCYTIC LEUKAEMIA
     Dosage: (CYCLE = 28 DAYS)
     Route: 048
     Dates: start: 20191113, end: 20200714
  8. VENETOCLAX. [Suspect]
     Active Substance: VENETOCLAX
     Dosage: D22-28, CYCLE 3 (CYCLE = 28 DAYS)
     Route: 048
  9. OBINUTUZUMAB. [Concomitant]
     Active Substance: OBINUTUZUMAB
     Dosage: D8 + 15, CYCLE 1 (CYCLE = 28 DAYS)
     Route: 042
  10. VENETOCLAX. [Suspect]
     Active Substance: VENETOCLAX
     Dosage: D15-21, CYCLE 3 (CYCLE = 28 DAYS)
     Route: 048

REACTIONS (2)
  - Encephalopathy [Not Recovered/Not Resolved]
  - Pyrexia [Not Recovered/Not Resolved]

NARRATIVE: CASE EVENT DATE: 20200715
